FAERS Safety Report 9729460 (Version 1)
Quarter: 2013Q4

REPORT INFORMATION
  Report Type: Spontaneous
  Country: US (occurrence: US)
  Receive Date: 20131204
  Receipt Date: 20131204
  Transmission Date: 20140711
  Serious: Yes (Hospitalization)
  Sender: FDA-Public Use
  Company Number: US-GILEAD-2009-0021439

PATIENT
  Age: 39 Year
  Sex: Female

DRUGS (8)
  1. LETAIRIS [Suspect]
     Indication: PULMONARY ARTERIAL HYPERTENSION
     Route: 048
     Dates: start: 20090321, end: 20090407
  2. CELEBREX [Concomitant]
  3. LEUCOVOR CA [Concomitant]
  4. METHADONE [Concomitant]
  5. TRAVATAN Z [Concomitant]
  6. FENTANYL PATCH [Concomitant]
  7. NEXIUM [Concomitant]
  8. METHOTREXATE [Concomitant]

REACTIONS (2)
  - Oedema [Recovered/Resolved]
  - Weight increased [Unknown]
